FAERS Safety Report 13458851 (Version 2)
Quarter: 2017Q3

REPORT INFORMATION
  Report Type: Spontaneous
  Country: US (occurrence: US)
  Receive Date: 20170419
  Receipt Date: 20170712
  Transmission Date: 20171127
  Serious: Yes (Other)
  Sender: FDA-Public Use
  Company Number: US-BAYER-2017-074069

PATIENT
  Age: 41 Year
  Sex: Female

DRUGS (5)
  1. AVELOX [Suspect]
     Active Substance: MOXIFLOXACIN HYDROCHLORIDE
     Dosage: UNK
  2. LEVOTHYROXINE. [Concomitant]
     Active Substance: LEVOTHYROXINE
     Dosage: UNK
  3. CIPROFLOXACIN. [Suspect]
     Active Substance: CIPROFLOXACIN
     Dosage: UNK
  4. MAXZIDE [Concomitant]
     Active Substance: HYDROCHLOROTHIAZIDE\TRIAMTERENE
     Dosage: UNK
  5. POTASSIUM [Concomitant]
     Active Substance: POTASSIUM
     Dosage: UNK

REACTIONS (28)
  - Lymphadenectomy [None]
  - Rectal haemorrhage [None]
  - Tendon pain [None]
  - Neuropathy peripheral [None]
  - Urinary tract infection [None]
  - Arthralgia [None]
  - Tendon rupture [None]
  - Seroma [None]
  - Drug hypersensitivity [None]
  - Hypothyroidism [None]
  - Oropharyngeal discomfort [None]
  - Dysphagia [None]
  - Goitre [None]
  - Pyrexia [None]
  - Haematuria [None]
  - Cough [None]
  - Pain in extremity [None]
  - Musculoskeletal pain [None]
  - Night sweats [None]
  - Peripheral swelling [None]
  - Neck pain [None]
  - Intervertebral disc protrusion [None]
  - Radiculopathy [None]
  - Hypoaesthesia [None]
  - Acute sinusitis [None]
  - Bronchitis [None]
  - Hyperlipidaemia [None]
  - Neuropathy peripheral [None]

NARRATIVE: CASE EVENT DATE: 201002
